FAERS Safety Report 25117886 (Version 1)
Quarter: 2025Q1

REPORT INFORMATION
  Report Type: Spontaneous
  Country: US (occurrence: None)
  Receive Date: 20250324
  Receipt Date: 20250324
  Transmission Date: 20250409
  Serious: Yes (Disabling)
  Sender: FDA-CTU
  Company Number: None

PATIENT
  Age: 62 Year
  Sex: Female
  Weight: 63 kg

DRUGS (19)
  1. REPATHA [Suspect]
     Active Substance: EVOLOCUMAB
     Indication: Hyperlipidaemia
     Route: 058
     Dates: start: 20241208, end: 20250203
  2. LAMICTAL XR [Concomitant]
     Active Substance: LAMOTRIGINE
  3. ZONISAMIDE [Concomitant]
     Active Substance: ZONISAMIDE
  4. CLOBAZAM [Concomitant]
     Active Substance: CLOBAZAM
  5. LISINOPRIL [Concomitant]
     Active Substance: LISINOPRIL
  6. OXYBUTYNIN [Concomitant]
     Active Substance: OXYBUTYNIN
  7. VITAMINS [Concomitant]
     Active Substance: VITAMINS
  8. IRON [Concomitant]
     Active Substance: IRON
  9. CALCIUM [Concomitant]
     Active Substance: CALCIUM
  10. MAGNESIUM [Concomitant]
     Active Substance: MAGNESIUM
  11. VITAMIN D NOS [Concomitant]
     Active Substance: CHOLECALCIFEROL\ERGOCALCIFEROL
  12. VITAMIN B [Concomitant]
     Active Substance: VITAMIN B
  13. OMEGA-3 ACIDS [Concomitant]
     Active Substance: OMEGA-3 FATTY ACIDS
  14. VITAMIN C [Concomitant]
     Active Substance: ASCORBIC ACID
  15. FISH OIL [Concomitant]
     Active Substance: FISH OIL
  16. HERBALS\TURMERIC [Concomitant]
     Active Substance: HERBALS\TURMERIC
  17. HERBALS [Concomitant]
     Active Substance: HERBALS
  18. acerola cherry extract [Concomitant]
  19. PROBIOTICS NOS [Concomitant]
     Active Substance: PROBIOTICS NOS

REACTIONS (1)
  - Diarrhoea [None]

NARRATIVE: CASE EVENT DATE: 20241224
